FAERS Safety Report 25252170 (Version 4)
Quarter: 2025Q2

REPORT INFORMATION
  Report Type: Spontaneous
  Country: BR (occurrence: BR)
  Receive Date: 20250429
  Receipt Date: 20250610
  Transmission Date: 20250716
  Serious: Yes (Hospitalization)
  Sender: VERITY PHARMACEUTICALS INC.
  Company Number: BR-VER-202500004

PATIENT
  Age: 33 Year
  Sex: Female

DRUGS (7)
  1. TRIPTORELIN PAMOATE [Suspect]
     Active Substance: TRIPTORELIN PAMOATE
     Indication: Breast cancer
     Dosage: POWDER AND SOLVENT FOR SUSPENSION FOR INJECTION
     Route: 030
     Dates: start: 20250320
  2. TRIPTORELIN PAMOATE [Suspect]
     Active Substance: TRIPTORELIN PAMOATE
     Indication: Metastases to lymph nodes
     Dosage: POWDER AND SOLVENT FOR SUSPENSION FOR INJECTION
     Route: 030
     Dates: start: 20250320
  3. ABEMACICLIB [Concomitant]
     Active Substance: ABEMACICLIB
     Indication: Breast cancer
     Route: 065
     Dates: start: 20250321, end: 20250321
  4. ABEMACICLIB [Concomitant]
     Active Substance: ABEMACICLIB
     Indication: Metastases to lymph nodes
     Route: 065
     Dates: start: 20250321, end: 20250321
  5. ANASTROZOLE [Concomitant]
     Active Substance: ANASTROZOLE
     Indication: Breast cancer
     Route: 065
  6. ANASTROZOLE [Concomitant]
     Active Substance: ANASTROZOLE
     Indication: Metastases to lymph nodes
     Route: 065
  7. LOSARTAN [Concomitant]
     Active Substance: LOSARTAN
     Indication: Hypertension
     Route: 065

REACTIONS (10)
  - Product use in unapproved indication [Unknown]
  - Oxygen saturation decreased [Recovered/Resolved]
  - Chills [Recovered/Resolved]
  - Cough [Recovered/Resolved]
  - Diarrhoea [Recovered/Resolved]
  - Dysphagia [Recovered/Resolved]
  - Dyspnoea [Recovered/Resolved]
  - Headache [Recovered/Resolved]
  - Metastases to central nervous system [Not Recovered/Not Resolved]
  - Vomiting [Recovered/Resolved]

NARRATIVE: CASE EVENT DATE: 20250320
